FAERS Safety Report 21856727 (Version 1)
Quarter: 2023Q1

REPORT INFORMATION
  Report Type: Spontaneous
  Country: US (occurrence: US)
  Receive Date: 20230113
  Receipt Date: 20230113
  Transmission Date: 20230418
  Serious: Yes (Other)
  Sender: FDA-Public Use
  Company Number: US-AMGEN-USASP2022227321

PATIENT

DRUGS (10)
  1. RITUXIMAB [Suspect]
     Active Substance: RITUXIMAB
     Indication: Lymphoma
     Dosage: UNK
     Route: 065
  2. ETANERCEPT [Suspect]
     Active Substance: ETANERCEPT
     Indication: Product used for unknown indication
     Dosage: UNK
     Route: 065
  3. Immunoglobulin [Concomitant]
     Indication: Lymphoma
     Dosage: UNK
  4. PFIZER-BIONTECH COVID-19 VACCINE [Concomitant]
     Active Substance: TOZINAMERAN
     Dosage: 2 DOSES
  5. JANSSEN COVID-19 VACCINE [Concomitant]
     Active Substance: AD26.COV2.S
     Dosage: 1 DOSE
  6. MODERNA COVID-19 VACCINE [Concomitant]
     Active Substance: ELASOMERAN
     Dosage: 2 DOSES
  7. COVID-19 vaccine [Concomitant]
     Dosage: UNK
  8. SIROLIMUS [Concomitant]
     Active Substance: SIROLIMUS
     Dosage: UNK
  9. TACROLIMUS [Concomitant]
     Active Substance: TACROLIMUS
     Dosage: UNK
  10. BELUMOSUDIL [Concomitant]
     Active Substance: BELUMOSUDIL
     Dosage: UNK

REACTIONS (3)
  - Chronic graft versus host disease [Unknown]
  - COVID-19 [Unknown]
  - SARS-CoV-2 antibody test negative [Unknown]
